FAERS Safety Report 16764711 (Version 1)
Quarter: 2019Q3

REPORT INFORMATION
  Report Type: Spontaneous
  Country: JP (occurrence: JP)
  Receive Date: 20190902
  Receipt Date: 20190902
  Transmission Date: 20191005
  Serious: Yes (Other)
  Sender: FDA-Public Use
  Company Number: JP-AMGEN-JPNSP2019140811

PATIENT
  Age: 83 Year
  Sex: Female
  Weight: 49.5 kg

DRUGS (5)
  1. ZACRAS COMBINATION [Concomitant]
     Active Substance: AMLODIPINE BESYLATE\AZILSARTAN
     Indication: HYPERTENSION
     Dosage: 1 DOSAGE FORM, , 1X/DAY
     Route: 048
     Dates: start: 20141003
  2. FOLIC ACID. [Concomitant]
     Active Substance: FOLIC ACID
     Indication: RHEUMATOID ARTHRITIS
     Dosage: UNK, WEEKLY (1 T IN THE MORNING)
     Route: 048
     Dates: start: 20190112
  3. PREDNISOLONE. [Concomitant]
     Active Substance: PREDNISOLONE
     Indication: RHEUMATOID ARTHRITIS
     Dosage: UNK, (ONCE-THREE TIMES DAILY)
     Route: 048
     Dates: start: 20181215
  4. METHOTREXATE. [Concomitant]
     Active Substance: METHOTREXATE
     Indication: RHEUMATOID ARTHRITIS
     Dosage: UNK,  WEEKLY (1 IN THE MORNING, 1 IN THE EVENING, 1 IN THE MORNING)
     Route: 048
     Dates: start: 20190112
  5. ENBREL [Suspect]
     Active Substance: ETANERCEPT
     Indication: RHEUMATOID ARTHRITIS
     Dosage: 50 MILLIGRAM, WEEKLY
     Route: 058
     Dates: start: 20190105, end: 20190618

REACTIONS (13)
  - Erythema [Recovered/Resolved]
  - Angioedema [Recovered/Resolved]
  - Lacrimation increased [Recovered/Resolved]
  - Haematocrit increased [Unknown]
  - Platelet count increased [Unknown]
  - Protein total decreased [Unknown]
  - Oedema [Recovered/Resolved]
  - Conjunctival oedema [Recovered/Resolved]
  - Haemoglobin increased [Unknown]
  - Conjunctival hyperaemia [Recovered/Resolved]
  - Swelling face [Recovered/Resolved]
  - Red blood cell count increased [Unknown]
  - White blood cell count increased [Unknown]

NARRATIVE: CASE EVENT DATE: 201906
